FAERS Safety Report 13966925 (Version 1)
Quarter: 2017Q3

REPORT INFORMATION
  Report Type: Spontaneous
  Country: RU (occurrence: RU)
  Receive Date: 20170914
  Receipt Date: 20170914
  Transmission Date: 20171128
  Serious: Yes (Hospitalization, Other)
  Sender: FDA-Public Use
  Company Number: RU-ASTRAZENECA-2017SE92691

PATIENT
  Age: 76 Year
  Sex: Female
  Weight: 79 kg

DRUGS (6)
  1. CARDIKET [Concomitant]
     Active Substance: ISOSORBIDE DINITRATE
  2. AMPRILAN [Concomitant]
     Active Substance: RAMIPRIL
  3. RANEXA [Concomitant]
     Active Substance: RANOLAZINE
  4. BISOPROLOL [Concomitant]
     Active Substance: BISOPROLOL
  5. BRILINTA [Suspect]
     Active Substance: TICAGRELOR
     Indication: MYOCARDIAL INFARCTION
     Route: 048
     Dates: start: 20170613, end: 20170811
  6. INDAPAMIDE. [Concomitant]
     Active Substance: INDAPAMIDE

REACTIONS (2)
  - Vascular stent thrombosis [Recovered/Resolved]
  - Myocardial infarction [Recovered/Resolved]

NARRATIVE: CASE EVENT DATE: 20170811
